FAERS Safety Report 12144014 (Version 3)
Quarter: 2016Q2

REPORT INFORMATION
  Report Type: Spontaneous
  Country: CA (occurrence: CA)
  Receive Date: 20160304
  Receipt Date: 20160505
  Transmission Date: 20160815
  Serious: Yes (Disabling, Other)
  Sender: FDA-Public Use
  Company Number: CA-009507513-1602CAN011284

PATIENT
  Age: 53 Year
  Sex: Female

DRUGS (8)
  1. MOMETASONE FUROATE. [Suspect]
     Active Substance: MOMETASONE FUROATE
     Indication: ASTHMA
     Dosage: 100MCG (2 DOSES) PER DAY OR 50MCG TWICE DAILY
     Route: 055
  2. FOSAMAX [Suspect]
     Active Substance: ALENDRONATE SODIUM
     Indication: BONE DENSITY DECREASED
     Dosage: 70 MG, QW
     Route: 048
     Dates: start: 2001, end: 2013
  3. FOSAMAX [Suspect]
     Active Substance: ALENDRONATE SODIUM
     Dosage: UNK
     Route: 048
     Dates: start: 2013
  4. FORMOTEROL FUMARATE [Suspect]
     Active Substance: FORMOTEROL FUMARATE
     Indication: ASTHMA
     Dosage: 12  MICROGRAM(TWO DOSES), BID
     Route: 055
  5. BUDESONIDE. [Suspect]
     Active Substance: BUDESONIDE
     Indication: ASTHMA
     Dosage: 200 MICROGRAM, UNK
     Route: 055
  6. CALCIUM (UNSPECIFIED) [Concomitant]
     Active Substance: CALCIUM
     Indication: SUPPLEMENTATION THERAPY
     Dosage: 500 MG, QD
  7. VITAMIN D [Concomitant]
     Active Substance: CHOLECALCIFEROL
     Indication: SUPPLEMENTATION THERAPY
     Dosage: 100 IU, QD
  8. ESTROGEL [Concomitant]
     Active Substance: ESTRADIOL
     Indication: POLYCYSTIC OVARIES
     Dosage: UNK, QD
     Dates: start: 1996

REACTIONS (1)
  - Stress fracture [Recovered/Resolved]
